FAERS Safety Report 24409628 (Version 1)
Quarter: 2024Q4

REPORT INFORMATION
  Report Type: Report from Study
  Country: UY (occurrence: UY)
  Receive Date: 20241008
  Receipt Date: 20241008
  Transmission Date: 20250115
  Serious: Yes (Other)
  Sender: ABBVIE
  Company Number: UY-ABBVIE-5950348

PATIENT
  Age: 42 Year
  Sex: Female

DRUGS (1)
  1. RINVOQ [Suspect]
     Active Substance: UPADACITINIB
     Indication: Rheumatoid arthritis
     Dosage: STRENGTH 15 MILLIGRAM LAST ADMIN DATE 2024
     Route: 048
     Dates: start: 20240912

REACTIONS (3)
  - Blood pressure abnormal [Unknown]
  - Chest pain [Unknown]
  - Gastritis [Unknown]

NARRATIVE: CASE EVENT DATE: 20240929
